FAERS Safety Report 7489623-3 (Version None)
Quarter: 2011Q2

REPORT INFORMATION
  Report Type: 
  Country: None (occurrence: None)
  Receive Date: 20110519
  Receipt Date: 20110511
  Transmission Date: 20111010
  Serious: No
  Sender: FDA-Public Use
  Company Number: US-BIOGENIDEC-2010BI034697

PATIENT
  Age: 46 Year
  Sex: Female

DRUGS (1)
  1. TYSABRI [Suspect]
     Indication: MULTIPLE SCLEROSIS
     Route: 042
     Dates: start: 20091202, end: 20100601

REACTIONS (5)
  - VISUAL IMPAIRMENT [None]
  - HYPOAESTHESIA FACIAL [None]
  - GAIT DISTURBANCE [None]
  - AGRAPHIA [None]
  - COORDINATION ABNORMAL [None]
